FAERS Safety Report 25579149 (Version 2)
Quarter: 2025Q3

REPORT INFORMATION
  Report Type: Spontaneous
  Country: US (occurrence: US)
  Receive Date: 20250718
  Receipt Date: 20250813
  Transmission Date: 20251021
  Serious: Yes (Hospitalization, Other)
  Sender: GLAXOSMITHKLINE
  Company Number: US-GLAXOSMITHKLINE INC-US2025AMR090172

PATIENT
  Sex: Male
  Weight: 83 kg

DRUGS (6)
  1. NUCALA [Suspect]
     Active Substance: MEPOLIZUMAB
     Indication: Hypereosinophilic syndrome
     Dosage: 300 MG, Q4W
  2. NUCALA [Suspect]
     Active Substance: MEPOLIZUMAB
     Indication: Autoinflammatory disease
  3. KINERET [Suspect]
     Active Substance: ANAKINRA
     Indication: Product used for unknown indication
  4. IBUPROFEN [Concomitant]
     Active Substance: IBUPROFEN
     Indication: Product used for unknown indication
  5. MOTRIN IB [Concomitant]
     Active Substance: IBUPROFEN
     Indication: Product used for unknown indication
  6. PREDNISONE [Concomitant]
     Active Substance: PREDNISONE
     Indication: Product used for unknown indication

REACTIONS (5)
  - Inflammation [Unknown]
  - Hypoxia [Unknown]
  - Pyrexia [Unknown]
  - Hypersensitivity [Unknown]
  - Product use in unapproved indication [Unknown]
